FAERS Safety Report 8584634-9 (Version None)
Quarter: 2012Q3

REPORT INFORMATION
  Report Type: 
  Country: None (occurrence: None)
  Receive Date: 20120810
  Receipt Date: 20120809
  Transmission Date: 20120928
  Serious: Yes (Hospitalization, Other)
  Sender: FDA-Public Use
  Company Number: US-PFIZER INC-2011154062

PATIENT
  Age: 33 Year
  Sex: Female

DRUGS (1)
  1. CHANTIX [Suspect]
     Indication: SMOKING CESSATION THERAPY
     Dosage: AS DIRECTED ON PACKAGE, UNK
     Dates: start: 20071001, end: 20071201

REACTIONS (11)
  - PALPITATIONS [None]
  - ANXIETY [None]
  - ABDOMINAL DISCOMFORT [None]
  - AGITATION [None]
  - PANIC ATTACK [None]
  - MENTAL DISORDER [None]
  - SUICIDE ATTEMPT [None]
  - NIGHTMARE [None]
  - INTENTIONAL OVERDOSE [None]
  - DEPRESSION [None]
  - NAUSEA [None]
